FAERS Safety Report 6370432-3 (Version None)
Quarter: 2009Q3

REPORT INFORMATION
  Report Type: 
  Country: None (occurrence: None)
  Receive Date: 20090921
  Receipt Date: 20090921
  Transmission Date: 20100115
  Serious: No
  Sender: FDA-Public Use
  Company Number: None

PATIENT
  Age: 31 Year
  Sex: Female
  Weight: 91.6266 kg

DRUGS (1)
  1. LEVONORGESTREL + ETHINYL ESTRADIOL [Suspect]
     Indication: CONTRACEPTION
     Dosage: 0.15 - 0.03MG ONE PO DAILY
     Route: 048
     Dates: start: 20081125, end: 20081229

REACTIONS (4)
  - ARTHRALGIA [None]
  - PRODUCT SUBSTITUTION ISSUE [None]
  - SKIN DISORDER [None]
  - UNEVALUABLE EVENT [None]
